FAERS Safety Report 26071131 (Version 1)
Quarter: 2025Q4

REPORT INFORMATION
  Report Type: Spontaneous
  Country: US (occurrence: US)
  Receive Date: 20251120
  Receipt Date: 20251120
  Transmission Date: 20260117
  Serious: No
  Sender: BIOGEN
  Company Number: US-BIOGEN-2090661

PATIENT
  Age: 58 Year
  Sex: Female

DRUGS (3)
  1. TYSABRI [Suspect]
     Active Substance: NATALIZUMAB
     Indication: Multiple sclerosis
     Dates: start: 20241108, end: 20241230
  2. TYSABRI [Suspect]
     Active Substance: NATALIZUMAB
     Dates: start: 20230818, end: 20240916
  3. TYSABRI [Suspect]
     Active Substance: NATALIZUMAB
     Dates: start: 20241125, end: 20250709

REACTIONS (1)
  - Hepatic steatosis [Unknown]

NARRATIVE: CASE EVENT DATE: 20251105
